FAERS Safety Report 5782935-0 (Version None)
Quarter: 2008Q2

REPORT INFORMATION
  Report Type: 
  Country: None (occurrence: None)
  Receive Date: 20080619
  Receipt Date: 20080619
  Transmission Date: 20081010
  Serious: Yes (Life-Threatening, Hospitalization)
  Sender: FDA-Public Use
  Company Number: None

PATIENT
  Age: 86 Year
  Sex: Female
  Weight: 68.0396 kg

DRUGS (1)
  1. DIGITEK  25MG. [Suspect]
     Indication: HEART RATE INCREASED
     Dosage: 1 X DAY MOUTH
     Route: 048
     Dates: start: 20080228, end: 20080312

REACTIONS (3)
  - PHOTOPSIA [None]
  - THERAPEUTIC AGENT TOXICITY [None]
  - VOMITING [None]
